FAERS Safety Report 9009185 (Version 1)
Quarter: 2013Q1

REPORT INFORMATION
  Report Type: Report from Study
  Country: US (occurrence: US)
  Receive Date: 20130111
  Receipt Date: 20130111
  Transmission Date: 20140127
  Serious: Yes (Hospitalization)
  Sender: FDA-Public Use
  Company Number: PHHO2013US000491

PATIENT
  Sex: Male

DRUGS (18)
  1. ZOMETA [Suspect]
     Dosage: 4 MG, 1/3 MONTH
     Route: 042
  2. BISOPROLOL FUMARATE [Suspect]
     Dosage: 1 DF, 1 DAY
     Route: 048
  3. ALPRAZOLAM [Suspect]
     Indication: SLEEP DISORDER
     Dosage: 0.25 MG,1 DAY
     Route: 048
  4. ASPIRIN [Suspect]
     Dosage: 81 MG, 1 DAY
     Route: 048
  5. OXYCODONE [Suspect]
     Dosage: 1 DF, 1/4 HOUR
     Route: 048
  6. DASATINIB [Suspect]
     Indication: PROSTATE CANCER
     Dosage: 70 MG, 1 DAY
     Route: 048
     Dates: start: 20120105
  7. ABIRATERONE ACETATE [Suspect]
     Indication: PROSTATE CANCER
     Dosage: 1000 MG, 1 DAY
     Route: 048
     Dates: start: 20110915
  8. DEGARELIX ACETATE [Suspect]
     Dosage: 80 MG, 1 MONTH
     Route: 058
  9. MULTIVITAMINS [Suspect]
     Dosage: 1 DF, 1 DAY
     Route: 048
  10. KLOR-CON [Suspect]
     Dosage: 20 MEQ, 1 DAY
     Route: 048
  11. CLARITIN [Suspect]
     Dosage: 10 MG, 1 DAY
     Route: 048
  12. TESSALON PERLE [Suspect]
     Dosage: 100 MG, AS NECESSARY
     Route: 048
  13. METOPROLOL [Concomitant]
  14. CARAFATE [Concomitant]
  15. FIRMAGON//DEGARELIX [Concomitant]
     Dosage: UNK
     Dates: end: 20120920
  16. METOPROLOL TARTRATE [Concomitant]
  17. PREDNISONE [Concomitant]
  18. REGLAN [Concomitant]

REACTIONS (2)
  - Pain [Recovered/Resolved]
  - Renal failure acute [Unknown]
